FAERS Safety Report 10046051 (Version 3)
Quarter: 2014Q2

REPORT INFORMATION
  Report Type: Spontaneous
  Country: JP (occurrence: JP)
  Receive Date: 20140331
  Receipt Date: 20140430
  Transmission Date: 20141212
  Serious: Yes (Hospitalization, Other)
  Sender: FDA-Public Use
  Company Number: JP-UCBSA-115832

PATIENT
  Age: 84 Year
  Sex: Female
  Weight: 48 kg

DRUGS (9)
  1. XYZAL [Suspect]
     Indication: PRURITUS
     Route: 048
     Dates: start: 20130823, end: 20140312
  2. BAYASPRIN [Concomitant]
     Dosage: DOSAGE FORM:ECT
     Route: 048
  3. OMEPRAL [Concomitant]
  4. AMLODIN [Concomitant]
     Route: 048
  5. LOSARTAN POTASSIUM [Concomitant]
     Route: 048
  6. ETIZOLAM [Concomitant]
     Route: 048
  7. MOHRUS TAPE [Concomitant]
     Dosage: DOSAGE FORM:PADS
     Route: 062
  8. MAGLAX [Concomitant]
     Route: 048
  9. PHELLOBERIN [Concomitant]
     Route: 048

REACTIONS (7)
  - Dysarthria [Recovering/Resolving]
  - Myoclonus [Recovering/Resolving]
  - Gait disturbance [Recovering/Resolving]
  - Dyslalia [Recovering/Resolving]
  - Dysstasia [Recovering/Resolving]
  - Tremor [Recovering/Resolving]
  - Overdose [Recovering/Resolving]
